FAERS Safety Report 19310829 (Version 2)
Quarter: 2021Q2

REPORT INFORMATION
  Report Type: Report from Study
  Country: KR (occurrence: KR)
  Receive Date: 20210526
  Receipt Date: 20210527
  Transmission Date: 20210717
  Serious: Yes (Other)
  Sender: FDA-Public Use
  Company Number: KR-GILEAD-2021-0532774

PATIENT
  Sex: Female

DRUGS (3)
  1. ZEFFIX [Concomitant]
     Active Substance: LAMIVUDINE
     Dosage: 100 MG
     Route: 048
  2. ZEFFIX [Concomitant]
     Active Substance: LAMIVUDINE
     Indication: PRODUCT USED FOR UNKNOWN INDICATION
     Dosage: 100 MG
     Route: 048
  3. ADEFOVIR DIPIVOXIL. [Suspect]
     Active Substance: ADEFOVIR DIPIVOXIL
     Indication: HEPATIC CANCER
     Dosage: 10 MG, QD
     Route: 048
     Dates: start: 20151012, end: 20161021

REACTIONS (1)
  - Renal impairment [Unknown]
